FAERS Safety Report 18258663 (Version 1)
Quarter: 2020Q3

REPORT INFORMATION
  Report Type: Spontaneous
  Country: DK (occurrence: DK)
  Receive Date: 20200911
  Receipt Date: 20200911
  Transmission Date: 20201103
  Serious: Yes (Other)
  Sender: FDA-Public Use
  Company Number: NVSC2020DK245260

PATIENT
  Age: 51 Year
  Sex: Female
  Weight: 55 kg

DRUGS (7)
  1. PANTOPRAZOLO TEVA [Concomitant]
     Active Substance: PANTOPRAZOLE SODIUM
     Indication: GASTROOESOPHAGEAL REFLUX DISEASE
     Dosage: 40 MG, QD
     Route: 048
     Dates: start: 20160121
  2. TRISEKVENS [Concomitant]
     Active Substance: ETHINYL ESTRADIOL\NORETHINDRONE
     Indication: HORMONE THERAPY
     Dosage: 1 DF, QD
     Route: 048
     Dates: start: 2013
  3. PARACETAMOL SANDOZ [Concomitant]
     Active Substance: ACETAMINOPHEN
     Indication: MYALGIA
     Dosage: 1000 MG, PRN
     Route: 048
     Dates: start: 2018
  4. ALNOK [Suspect]
     Active Substance: CETIRIZINE HYDROCHLORIDE
     Dosage: 10 MG, QD
     Route: 048
     Dates: start: 20200818
  5. INNOVAIR [Concomitant]
     Active Substance: BECLOMETHASONE DIPROPIONATE\FORMOTEROL
     Indication: ASTHMA
     Dosage: 4 DF, QD (100+6MG PER DOSE)
     Route: 055
     Dates: start: 20190304
  6. ASACOL [Concomitant]
     Active Substance: MESALAMINE
     Indication: COLITIS ULCERATIVE
     Dosage: UNK
     Route: 054
     Dates: start: 2012
  7. ALNOK [Suspect]
     Active Substance: CETIRIZINE HYDROCHLORIDE
     Indication: SEASONAL ALLERGY
     Dosage: 10 MG, QD
     Route: 048
     Dates: start: 20200515

REACTIONS (4)
  - Nausea [Recovering/Resolving]
  - Urinary retention [Recovering/Resolving]
  - Palpitations [Recovering/Resolving]
  - Depressed mood [Recovered/Resolved]

NARRATIVE: CASE EVENT DATE: 20200515
